FAERS Safety Report 22091710 (Version 2)
Quarter: 2023Q1

REPORT INFORMATION
  Report Type: Spontaneous
  Country: US (occurrence: US)
  Receive Date: 20230314
  Receipt Date: 20230317
  Transmission Date: 20230417
  Serious: Yes (Other)
  Sender: FDA-Public Use
  Company Number: US-AMGEN-USASP2023040076

PATIENT
  Age: 74 Year
  Sex: Female

DRUGS (4)
  1. EVENITY [Suspect]
     Active Substance: ROMOSOZUMAB-AQQG
     Indication: Product used for unknown indication
     Dosage: 210 MILLIGRAM, QMO
     Route: 065
     Dates: start: 20230301
  2. EVENITY [Suspect]
     Active Substance: ROMOSOZUMAB-AQQG
  3. PROLIA [Suspect]
     Active Substance: DENOSUMAB
     Indication: Product used for unknown indication
     Dosage: UNK
     Route: 065
  4. TYLENOL [Concomitant]
     Active Substance: ACETAMINOPHEN
     Dosage: UNK
     Route: 050

REACTIONS (10)
  - Femur fracture [Unknown]
  - Pain in extremity [Unknown]
  - Back pain [Unknown]
  - Feeling cold [Unknown]
  - Dizziness [Unknown]
  - Visual impairment [Recovered/Resolved]
  - Pyrexia [Recovering/Resolving]
  - Headache [Not Recovered/Not Resolved]
  - Injection site erythema [Unknown]
  - Sinusitis [Unknown]

NARRATIVE: CASE EVENT DATE: 20230101
